FAERS Safety Report 14115110 (Version 1)
Quarter: 2017Q4

REPORT INFORMATION
  Report Type: Report from Study
  Country: US (occurrence: US)
  Receive Date: 20171023
  Receipt Date: 20171023
  Transmission Date: 20180321
  Serious: Yes (Other)
  Sender: FDA-Public Use
  Company Number: US-SA-2017SA122277

PATIENT
  Age: 64 Year
  Sex: Female
  Weight: 58.96 kg

DRUGS (1)
  1. LEMTRADA [Suspect]
     Active Substance: ALEMTUZUMAB
     Indication: MULTIPLE SCLEROSIS
     Route: 041
     Dates: start: 20161017, end: 20161021

REACTIONS (7)
  - Stomatitis [Not Recovered/Not Resolved]
  - Chest discomfort [Recovered/Resolved]
  - Pulmonary oedema [Unknown]
  - Fluid overload [Recovered/Resolved]
  - Oral herpes [Recovered/Resolved]
  - Crepitations [Recovered/Resolved]
  - Pain [Not Recovered/Not Resolved]

NARRATIVE: CASE EVENT DATE: 20161019
